FAERS Safety Report 25403586 (Version 1)
Quarter: 2025Q2

REPORT INFORMATION
  Report Type: Spontaneous
  Country: CN (occurrence: CN)
  Receive Date: 20250605
  Receipt Date: 20250605
  Transmission Date: 20250717
  Serious: Yes (Other)
  Sender: AMGEN
  Company Number: CN-AMGEN-CHNSP2025110410

PATIENT

DRUGS (1)
  1. REPATHA [Suspect]
     Active Substance: EVOLOCUMAB
     Indication: Acute coronary syndrome
     Dosage: 140 MILLIGRAM, Q4WK
     Route: 065

REACTIONS (2)
  - Myocardial infarction [Unknown]
  - Off label use [Unknown]
